FAERS Safety Report 4704353-6 (Version None)
Quarter: 2005Q2

REPORT INFORMATION
  Report Type: 
  Country: None (occurrence: None)
  Receive Date: 20050630
  Receipt Date: 20050617
  Transmission Date: 20051028
  Serious: Yes (Other)
  Sender: FDA-Public Use
  Company Number: BE-JNJFOC-20050605254

PATIENT
  Age: 53 Year
  Sex: Male

DRUGS (5)
  1. TOPAMAX [Suspect]
     Indication: CLUSTER HEADACHE
     Route: 049
  2. FLOXYFRAL [Concomitant]
  3. COVERSYL [Concomitant]
  4. SPIRONOLACTONE [Concomitant]
  5. BUMETANIDE [Concomitant]

REACTIONS (4)
  - FLUSHING [None]
  - LOSS OF CONSCIOUSNESS [None]
  - MUSCLE RIGIDITY [None]
  - TREMOR [None]
